FAERS Safety Report 8391125-7 (Version None)
Quarter: 2012Q1

REPORT INFORMATION
  Report Type: 
  Country: None (occurrence: None)
  Receive Date: 20120323
  Receipt Date: 20110516
  Transmission Date: 20120608
  Serious: Yes (Other)
  Sender: FDA-Public Use
  Company Number: 163-21880-11042416

PATIENT
  Age: 63 Year
  Sex: Male

DRUGS (5)
  1. TERAZOSIN HCL [Concomitant]
  2. DECADRON [Concomitant]
  3. PROCRIT [Concomitant]
  4. REVLIMID [Suspect]
     Indication: MULTIPLE MYELOMA
     Dosage: 25 MG, QD, PO
     Route: 048
     Dates: start: 20100701
  5. ATENOLOL [Concomitant]

REACTIONS (3)
  - MUSCLE SPASMS [None]
  - PANCYTOPENIA [None]
  - DRUG INEFFECTIVE [None]
